FAERS Safety Report 16947557 (Version 2)
Quarter: 2019Q4

REPORT INFORMATION
  Report Type: Spontaneous
  Country: US (occurrence: US)
  Receive Date: 20191022
  Receipt Date: 20191031
  Transmission Date: 20200122
  Serious: Yes (Hospitalization)
  Sender: FDA-Public Use
  Company Number: US-TEVA-2019-US-1125645

PATIENT
  Age: 71 Year
  Sex: Female

DRUGS (1)
  1. SALBUTAMOL W/IPRATROPIUM [Suspect]
     Active Substance: ALBUTEROL\IPRATROPIUM
     Indication: CHRONIC OBSTRUCTIVE PULMONARY DISEASE
     Dosage: EVERY 4 HOURS
     Route: 047

REACTIONS (3)
  - Pupils unequal [Recovered/Resolved]
  - Device leakage [Unknown]
  - Mydriasis [Recovered/Resolved]
